FAERS Safety Report 9882061 (Version 1)
Quarter: 2014Q1

REPORT INFORMATION
  Report Type: Spontaneous
  Country: US (occurrence: US)
  Receive Date: 20140207
  Receipt Date: 20140207
  Transmission Date: 20141002
  Serious: Yes (Death)
  Sender: FDA-Public Use
  Company Number: US-SA-2014SA014698

PATIENT
  Sex: Male

DRUGS (2)
  1. LOVENOX [Suspect]
     Route: 065
  2. WARFARIN [Suspect]
     Route: 065

REACTIONS (2)
  - Neoplasm malignant [Fatal]
  - International normalised ratio abnormal [Unknown]
